FAERS Safety Report 15441423 (Version 4)
Quarter: 2018Q4

REPORT INFORMATION
  Report Type: Report from Study
  Country: None (occurrence: AU)
  Receive Date: 20180928
  Receipt Date: 20181009
  Transmission Date: 20190204
  Serious: Yes (Other)
  Sender: FDA-Public Use
  Company Number: AU-ABBVIE-18S-008-2502569-00

PATIENT
  Age: 86 Year
  Sex: Male
  Weight: 77.7 kg

DRUGS (1)
  1. LUCRIN DEPOT [Suspect]
     Active Substance: LEUPROLIDE ACETATE
     Indication: PROSTATE CANCER
     Route: 050
     Dates: start: 20170629

REACTIONS (3)
  - Spinal compression fracture [Recovered/Resolved]
  - Musculoskeletal discomfort [Unknown]
  - Injury [Unknown]

NARRATIVE: CASE EVENT DATE: 20170901
